FAERS Safety Report 16626262 (Version 1)
Quarter: 2019Q3

REPORT INFORMATION
  Report Type: Spontaneous
  Country: US (occurrence: US)
  Receive Date: 20190724
  Receipt Date: 20190724
  Transmission Date: 20191004
  Serious: No
  Sender: FDA-Public Use
  Company Number: US-SHIRE-US201919232

PATIENT
  Sex: Female
  Weight: 75.28 kg

DRUGS (2)
  1. GATTEX [Suspect]
     Active Substance: TEDUGLUTIDE\WATER
     Indication: COLITIS ULCERATIVE
  2. GATTEX [Suspect]
     Active Substance: TEDUGLUTIDE\WATER
     Indication: ENTEROSTOMY
     Dosage: 0.377 MILLILITER, 1X/DAY:QD
     Route: 058

REACTIONS (1)
  - Blood creatinine increased [Unknown]
